FAERS Safety Report 4538678-4 (Version None)
Quarter: 2004Q4

REPORT INFORMATION
  Report Type: 
  Country: None (occurrence: None)
  Receive Date: 20041222
  Receipt Date: 20041203
  Transmission Date: 20050328
  Serious: Yes (Other)
  Sender: FDA-Public Use
  Company Number: 04-316

PATIENT

DRUGS (3)
  1. ASPIRIN [Suspect]
     Indication: ANALGESIC EFFECT
  2. IBUPROFEN [Suspect]
     Indication: ANALGESIC EFFECT
  3. DICLOFENAC (DICLOFENAC) [Suspect]
     Indication: ANALGESIC EFFECT

REACTIONS (1)
  - POST PROCEDURAL HAEMORRHAGE [None]
